FAERS Safety Report 4618129-1 (Version None)
Quarter: 2005Q1

REPORT INFORMATION
  Report Type: 
  Country: None (occurrence: None)
  Receive Date: 20050322
  Receipt Date: 20050308
  Transmission Date: 20050727
  Serious: No
  Sender: FDA-Public Use
  Company Number: B0374575A

PATIENT
  Age: 10 Year
  Sex: Male

DRUGS (2)
  1. VENTOLIN [Suspect]
     Indication: COUGH
     Dosage: 2.5 MG / SINGLE DOSE / NEBULISER
  2. CEFTRIAXONE [Suspect]

REACTIONS (10)
  - ANAEMIA [None]
  - BLOOD CREATINE PHOSPHOKINASE MB INCREASED [None]
  - BLOOD PRESSURE DECREASED [None]
  - COMA [None]
  - HAEMOLYSIS [None]
  - MYOCARDIAL ISCHAEMIA [None]
  - PALLOR [None]
  - PERIPHERAL COLDNESS [None]
  - SINUS TACHYCARDIA [None]
  - TROPONIN I INCREASED [None]
